FAERS Safety Report 9760062 (Version 2)
Quarter: 2013Q4

REPORT INFORMATION
  Report Type: Spontaneous
  Country: US (occurrence: US)
  Receive Date: 20131216
  Receipt Date: 20131217
  Transmission Date: 20140711
  Serious: Yes (Other)
  Sender: FDA-Public Use
  Company Number: US-JNJFOC-20131205528

PATIENT
  Age: 50 Year
  Sex: Female
  Weight: 67.13 kg

DRUGS (5)
  1. REMICADE [Suspect]
     Indication: BIRDSHOT CHORIORETINOPATHY
     Route: 042
     Dates: start: 201112, end: 2012
  2. REMICADE [Suspect]
     Indication: BIRDSHOT CHORIORETINOPATHY
     Route: 042
     Dates: start: 2013
  3. REMICADE [Suspect]
     Indication: BIRDSHOT CHORIORETINOPATHY
     Route: 042
     Dates: start: 2013
  4. REMICADE [Suspect]
     Indication: BIRDSHOT CHORIORETINOPATHY
     Route: 042
     Dates: start: 2012
  5. IMITREX [Concomitant]
     Indication: MIGRAINE
     Dosage: AS NEEDED, FOR 8 YEARS.
     Route: 048

REACTIONS (3)
  - Arthritis [Not Recovered/Not Resolved]
  - Adverse event [Unknown]
  - Off label use [Unknown]
